FAERS Safety Report 9745110 (Version 1)
Quarter: 2013Q4

REPORT INFORMATION
  Report Type: Spontaneous
  Country: US (occurrence: US)
  Receive Date: 20131211
  Receipt Date: 20131211
  Transmission Date: 20140711
  Serious: No
  Sender: FDA-Public Use
  Company Number: US-B.I. PHARMACEUTICALS,INC./RIDGEFIELD-2013-BI-38774BP

PATIENT
  Sex: Female
  Weight: 69 kg

DRUGS (9)
  1. PRADAXA [Suspect]
     Indication: ATRIAL FIBRILLATION
     Dosage: 300 MG
     Route: 048
     Dates: start: 2012
  2. MULTIVITAMIN [Concomitant]
     Dosage: 500 MG
     Route: 048
  3. CALCIUM + VITAMIN D [Concomitant]
     Dosage: 1200 MG
     Route: 048
  4. CITALOPRAM [Concomitant]
     Indication: STRESS
     Dosage: 10 MG
     Route: 048
  5. RED YEAST RICE [Concomitant]
     Dosage: 1200 MG
     Route: 048
  6. GABAPENTIN [Concomitant]
     Indication: PAIN IN EXTREMITY
     Dosage: 600 MG
     Route: 048
  7. FISH OIL [Concomitant]
     Dosage: 12 MG
     Route: 048
  8. COQ 10 [Concomitant]
     Dosage: 100 MG
     Route: 048
  9. LOSARTAN POTASSIUM [Concomitant]
     Dosage: 100 MG
     Route: 048

REACTIONS (5)
  - Fall [Recovered/Resolved]
  - Memory impairment [Not Recovered/Not Resolved]
  - Muscle spasms [Recovered/Resolved]
  - Pain [Recovered/Resolved]
  - Muscle spasms [Not Recovered/Not Resolved]
